FAERS Safety Report 5127046-2 (Version None)
Quarter: 2006Q4

REPORT INFORMATION
  Report Type: 
  Country: None (occurrence: None)
  Receive Date: 20061013
  Receipt Date: 20060823
  Transmission Date: 20070319
  Serious: Yes (Hospitalization)
  Sender: FDA-Public Use
  Company Number: FR-MERCK-0608FRA00032

PATIENT
  Age: 80 Year
  Sex: Female

DRUGS (6)
  1. ZETIA [Suspect]
     Indication: HYPERCHOLESTEROLAEMIA
     Route: 048
     Dates: start: 20060101, end: 20060710
  2. ENOXAPARIN SODIUM [Concomitant]
     Indication: SURGERY
     Route: 030
     Dates: start: 20060601
  3. LANSOPRAZOLE [Concomitant]
     Route: 048
     Dates: end: 20060720
  4. INDAPAMIDE AND PERINDOPRIL ERBUMINE [Concomitant]
     Indication: HYPERTENSION
     Route: 048
     Dates: end: 20060710
  5. NEBIVOLOL [Concomitant]
     Indication: HYPERTENSION
     Route: 048
     Dates: end: 20060720
  6. MOXONIDINE [Concomitant]
     Indication: HYPERTENSION
     Route: 048

REACTIONS (4)
  - CRYOGLOBULINAEMIA [None]
  - LEUKOCYTOCLASTIC VASCULITIS [None]
  - PYREXIA [None]
  - URTICARIA GENERALISED [None]
